FAERS Safety Report 15278438 (Version 5)
Quarter: 2019Q1

REPORT INFORMATION
  Report Type: Spontaneous
  Country: US (occurrence: US)
  Receive Date: 20180814
  Receipt Date: 20190208
  Transmission Date: 20190417
  Serious: Yes (Hospitalization, Other)
  Sender: FDA-Public Use
  Company Number: US-009507513-1808USA003574

PATIENT
  Sex: Female

DRUGS (3)
  1. REMERON [Suspect]
     Active Substance: MIRTAZAPINE
     Dosage: 10 MG, QD
     Route: 048
     Dates: start: 20180403, end: 2018
  2. REMERON [Suspect]
     Active Substance: MIRTAZAPINE
     Dosage: 60 MG, QD
     Route: 048
     Dates: start: 2018, end: 20180514
  3. REMERON [Suspect]
     Active Substance: MIRTAZAPINE
     Dosage: 30 MG, QD
     Route: 048
     Dates: start: 2018, end: 2018

REACTIONS (18)
  - Mental status changes [Recovering/Resolving]
  - Sensory loss [Not Recovered/Not Resolved]
  - Loss of consciousness [Recovered/Resolved]
  - Respiration abnormal [Recovering/Resolving]
  - Headache [Unknown]
  - Conversion disorder [Unknown]
  - Mania [Recovering/Resolving]
  - Coma [Recovered/Resolved]
  - Insomnia [Recovering/Resolving]
  - Cardiac failure [Recovering/Resolving]
  - Hepatic failure [Recovering/Resolving]
  - Rhabdomyolysis [Unknown]
  - Renal failure [Recovering/Resolving]
  - Seizure [Unknown]
  - Nerve injury [Not Recovered/Not Resolved]
  - Drug withdrawal syndrome [Recovering/Resolving]
  - Aggression [Recovering/Resolving]
  - Amnesia [Recovering/Resolving]

NARRATIVE: CASE EVENT DATE: 2018
